FAERS Safety Report 16095432 (Version 1)
Quarter: 2019Q1

REPORT INFORMATION
  Report Type: Spontaneous
  Country: US (occurrence: US)
  Receive Date: 20190320
  Receipt Date: 20190320
  Transmission Date: 20190418
  Serious: No
  Sender: FDA-Public Use
  Company Number: US-PFIZER INC-2019111128

PATIENT
  Age: 40 Year
  Sex: Male

DRUGS (7)
  1. SOMA [Suspect]
     Active Substance: CARISOPRODOL
     Dosage: UNK
  2. OMEPRAZOLE. [Suspect]
     Active Substance: OMEPRAZOLE
     Dosage: UNK
  3. FAMOTIDINE. [Suspect]
     Active Substance: FAMOTIDINE
     Dosage: UNK
  4. RABEPRAZOLE [Suspect]
     Active Substance: RABEPRAZOLE
     Dosage: UNK
  5. SUCRALFATE. [Suspect]
     Active Substance: SUCRALFATE
     Dosage: UNK
  6. RANITIDINE HCL [Suspect]
     Active Substance: RANITIDINE HYDROCHLORIDE
     Dosage: UNK
  7. PANTOPRAZOLE [Suspect]
     Active Substance: PANTOPRAZOLE
     Dosage: UNK

REACTIONS (3)
  - Drug hypersensitivity [Unknown]
  - Nausea [Unknown]
  - Vomiting [Unknown]
